FAERS Safety Report 7333662-X (Version None)
Quarter: 2011Q1

REPORT INFORMATION
  Report Type: 
  Country: None (occurrence: None)
  Receive Date: 20110306
  Receipt Date: 20110228
  Transmission Date: 20110831
  Serious: Yes (Life-Threatening, Hospitalization, Other)
  Sender: FDA-Public Use
  Company Number: US-ELI_LILLY_AND_COMPANY-US201007001662

PATIENT
  Sex: Female

DRUGS (5)
  1. FORTEO [Suspect]
     Dosage: 20 UG, DAILY (1/D)
  2. FORTEO [Suspect]
     Dosage: 20 UG, DAILY (1/D)
  3. LORTAB [Concomitant]
     Indication: PAIN
  4. FORTEO [Suspect]
     Indication: OSTEOPOROSIS
     Dosage: 20 UG, DAILY (1/D)
     Dates: start: 20090901
  5. ANALGESICS [Concomitant]
     Indication: PAIN
     Dosage: UNK, 2/M

REACTIONS (8)
  - APPARENT DEATH [None]
  - ABASIA [None]
  - POST PROCEDURAL HAEMORRHAGE [None]
  - PAIN IN EXTREMITY [None]
  - NERVE COMPRESSION [None]
  - INJECTION SITE PAIN [None]
  - INJECTION SITE HAEMATOMA [None]
  - BACK PAIN [None]
